FAERS Safety Report 12565306 (Version 1)
Quarter: 2016Q3

REPORT INFORMATION
  Report Type: Spontaneous
  Country: DE (occurrence: DE)
  Receive Date: 20160718
  Receipt Date: 20160718
  Transmission Date: 20161109
  Serious: Yes (Death)
  Sender: FDA-Public Use
  Company Number: DE-ROCHE-1795354

PATIENT
  Age: 56 Year
  Sex: Female

DRUGS (5)
  1. HARVONI [Suspect]
     Active Substance: LEDIPASVIR\SOFOSBUVIR
     Indication: CHRONIC HEPATITIS C
     Dosage: 1-0-0 (90/400 MG IN THE MORNING)
     Route: 048
     Dates: start: 20150706
  2. PROPRANOLOL [Concomitant]
     Active Substance: PROPRANOLOL\PROPRANOLOL HYDROCHLORIDE
     Dosage: 1-1-2 (10 MG MORNING AND NOON, 20 MG EVENING)
     Route: 065
  3. RIBAVIRIN. [Suspect]
     Active Substance: RIBAVIRIN
     Indication: CHRONIC HEPATITIS C
     Dosage: 3-0-2 (600 MG MORNING, 400 MG EVENING)
     Route: 048
     Dates: start: 20150706
  4. TORASEMID [Concomitant]
     Active Substance: TORSEMIDE
     Indication: ASCITES
     Dosage: CHANGING DOSES 10-20 MG
     Route: 048
  5. PANTOPRAZOL [Concomitant]
     Active Substance: PANTOPRAZOLE SODIUM
     Dosage: 1-0-1 (40 MG MORNING AND EVENING)
     Route: 065

REACTIONS (2)
  - Haemorrhage intracranial [Fatal]
  - Carotid artery stenosis [Fatal]

NARRATIVE: CASE EVENT DATE: 20151109
